FAERS Safety Report 7979293-X (Version None)
Quarter: 2011Q4

REPORT INFORMATION
  Report Type: 
  Country: None (occurrence: None)
  Receive Date: 20111214
  Receipt Date: 20111208
  Transmission Date: 20120403
  Serious: Yes (Hospitalization)
  Sender: FDA-Public Use
  Company Number: JP-BAYER-2011-113387

PATIENT
  Age: 86 Year
  Sex: Female

DRUGS (3)
  1. DEPAS [Concomitant]
     Dosage: UNK
     Route: 048
  2. ASPIRIN [Suspect]
     Dosage: UNK
     Route: 048
     Dates: start: 20110830
  3. PAXIL [Concomitant]
     Dosage: UNK
     Route: 048

REACTIONS (1)
  - STEVENS-JOHNSON SYNDROME [None]
